FAERS Safety Report 7283110-3 (Version None)
Quarter: 2011Q1

REPORT INFORMATION
  Report Type: 
  Country: None (occurrence: None)
  Receive Date: 20110209
  Receipt Date: 20100615
  Transmission Date: 20110831
  Serious: Yes (Hospitalization)
  Sender: FDA-Public Use
  Company Number: A0865284A

PATIENT
  Age: 58 Year
  Sex: Female

DRUGS (2)
  1. KLONOPIN [Concomitant]
  2. PAXIL CR [Suspect]
     Dosage: 50MG PER DAY
     Route: 048
     Dates: end: 20100301

REACTIONS (3)
  - DRUG INEFFECTIVE [None]
  - DEPRESSION [None]
  - ANXIETY [None]
